FAERS Safety Report 5329750-X (Version None)
Quarter: 2007Q2

REPORT INFORMATION
  Report Type: 
  Country: None (occurrence: None)
  Receive Date: 20070515
  Receipt Date: 20070503
  Transmission Date: 20071010
  Serious: Yes (Hospitalization)
  Sender: FDA-Public Use
  Company Number: 2007BI004456

PATIENT
  Sex: Female

DRUGS (13)
  1. AVONEX [Suspect]
     Indication: MULTIPLE SCLEROSIS
     Dosage: 30 UG; IM
     Route: 030
     Dates: start: 20041001
  2. MIRTAZAPINE [Concomitant]
  3. BACLOFEN [Concomitant]
  4. VENTOLIN [Concomitant]
  5. CLONIDINE [Concomitant]
  6. GABAPENTIN [Concomitant]
  7. TRAMADOL HCL [Concomitant]
  8. CAPSAICIN CREAM [Concomitant]
  9. AVONEX [Suspect]
  10. AVONEX [Suspect]
  11. AVONEX [Suspect]
  12. AVONEX [Suspect]
  13. AVONEX [Suspect]

REACTIONS (1)
  - KNEE ARTHROPLASTY [None]
